FAERS Safety Report 9493299 (Version 2)
Quarter: 2013Q3

REPORT INFORMATION
  Report Type: Report from Study
  Country: IT (occurrence: IT)
  Receive Date: 20130902
  Receipt Date: 20130902
  Transmission Date: 20140515
  Serious: Yes (Hospitalization)
  Sender: FDA-Public Use
  Company Number: PHHO2011IT13005

PATIENT
  Age: 80 Year
  Sex: Male
  Weight: 71 kg

DRUGS (8)
  1. ALISKIREN [Suspect]
     Indication: CARDIOVASCULAR DISORDER
     Route: 048
     Dates: start: 20100408, end: 20101220
  2. KCL-RETARD [Concomitant]
     Indication: HYPOKALAEMIA
     Dosage: 1200 MG, UNK
     Dates: start: 20101204, end: 20101218
  3. KCL-RETARD [Concomitant]
     Dosage: 600 MG, UNK
     Dates: start: 20101218, end: 20101219
  4. LANITOP [Suspect]
     Indication: CARDIAC FAILURE
  5. LASIX [Suspect]
     Indication: CARDIAC FAILURE
     Dosage: 25 MG, UNK
  6. LUVION [Suspect]
     Indication: CARDIAC FAILURE
     Dosage: 25 MG, UNK
  7. TRIATEC [Concomitant]
     Indication: HYPERTENSION
  8. DILATREND [Concomitant]

REACTIONS (2)
  - Hyperkalaemia [Recovered/Resolved]
  - Renal failure chronic [Recovered/Resolved with Sequelae]
